FAERS Safety Report 10436212 (Version 1)
Quarter: 2014Q3

REPORT INFORMATION
  Report Type: Spontaneous
  Country: US (occurrence: US)
  Receive Date: 20140908
  Receipt Date: 20140908
  Transmission Date: 20150326
  Serious: Yes (Other)
  Sender: FDA-Public Use
  Company Number: US-009507513-1409USA000248

PATIENT
  Sex: Male

DRUGS (13)
  1. TRILIPIX [Suspect]
     Active Substance: FENOFIBRIC ACID
     Indication: BLOOD CHOLESTEROL
     Dosage: 135 (UNIT NOT PROVIDED)
  2. TRILIPIX [Suspect]
     Active Substance: FENOFIBRIC ACID
     Indication: BLOOD TRIGLYCERIDES
  3. METOPROLOL [Concomitant]
     Active Substance: METOPROLOL
     Indication: BLOOD PRESSURE
     Dosage: 2 IN THE MORNING, 1 IN THE AFTERNOON, 75 A DAY
  4. ASPIRIN. [Concomitant]
     Active Substance: ASPIRIN
  5. TESTOSTERONE. [Concomitant]
     Active Substance: TESTOSTERONE
  6. GONGJINHYANG SEOL WHITENING INTENSIVE [Concomitant]
     Active Substance: DIACETYL BENZOYL LATHYROL
     Dosage: UNK, QD
  7. ZETIA [Suspect]
     Active Substance: EZETIMIBE
     Indication: BLOOD CHOLESTEROL
     Dosage: 10MG
     Route: 048
     Dates: start: 2014, end: 2014
  8. AMLODIPINE [Concomitant]
     Active Substance: AMLODIPINE BESYLATE
  9. DEPO-TESTOSTERONE 200 IM [Concomitant]
     Dosage: UNK, EVERY, UH, EVERY 4 WEEKS
     Route: 030
  10. FLONASE [Concomitant]
     Active Substance: FLUTICASONE PROPIONATE
     Indication: HYPERSENSITIVITY
  11. NITROGLYCERIN. [Concomitant]
     Active Substance: NITROGLYCERIN
  12. VIAGRA [Concomitant]
     Active Substance: SILDENAFIL CITRATE
     Dosage: UNK, PRN
  13. AMITRIPTYLIN 25 [Concomitant]
     Dosage: UNK, HS (25 AT BETTIME)

REACTIONS (9)
  - Surgery [Unknown]
  - Arthralgia [Unknown]
  - Renal impairment [Unknown]
  - Arthritis [Unknown]
  - Blood potassium increased [None]
  - Low density lipoprotein increased [Unknown]
  - Pain in extremity [Unknown]
  - Muscle spasms [Unknown]
  - Haemoglobin decreased [None]

NARRATIVE: CASE EVENT DATE: 2014
